FAERS Safety Report 8989688 (Version 2)
Quarter: 2013Q1

REPORT INFORMATION
  Report Type: Spontaneous
  Country: US (occurrence: US)
  Receive Date: 20121228
  Receipt Date: 20130225
  Transmission Date: 20140127
  Serious: Yes (Death, Hospitalization, Other)
  Sender: FDA-Public Use
  Company Number: US-AMGEN-USASP2012083455

PATIENT
  Age: 58 Year
  Sex: Male
  Weight: 54.42 kg

DRUGS (1)
  1. PROCRIT [Suspect]
     Indication: ANAEMIA
     Dosage: UNK

REACTIONS (14)
  - Cardio-respiratory arrest [Fatal]
  - Cardiac failure [Unknown]
  - Congestive cardiomyopathy [Unknown]
  - Arteriosclerosis coronary artery [Unknown]
  - Aortic arteriosclerosis [Unknown]
  - Aortic thrombosis [Unknown]
  - Arteriovenous shunt operation [Unknown]
  - Renal atrophy [Unknown]
  - Pulmonary embolism [Fatal]
  - Deep vein thrombosis [Unknown]
  - Gastritis [Unknown]
  - Decreased appetite [Unknown]
  - Asthenia [Unknown]
  - Weight decreased [Unknown]
